FAERS Safety Report 5133363-2 (Version None)
Quarter: 2006Q4

REPORT INFORMATION
  Report Type: 
  Country: None (occurrence: None)
  Receive Date: 20060831
  Receipt Date: 20060728
  Transmission Date: 20070319
  Serious: No
  Sender: FDA-Public Use
  Company Number: 2006-BP-04972BP

PATIENT
  Age: 73 Year
  Sex: Male
  Weight: 87.09 kg

DRUGS (11)
  1. SPIRIVA [Suspect]
     Indication: CHRONIC OBSTRUCTIVE PULMONARY DISEASE
     Dosage: 18 MCG (18 MCG,QD),IH
     Dates: start: 20060501
  2. SPIRIVA [Suspect]
     Indication: RESPIRATORY DISORDER
     Dosage: 18 MCG (18 MCG,QD),IH
     Dates: start: 20060501
  3. SPIRIVA [Suspect]
  4. AZMACORT [Concomitant]
  5. SEREVENT DISKUS (SALMETEROL XINAFOATE) [Concomitant]
  6. COMBIVENT (COMBIVENT /01261001/) [Concomitant]
  7. THEOPHYLLINE [Concomitant]
  8. BRETHINE [Concomitant]
  9. IBUPROFEN [Concomitant]
  10. ASPIRIN [Concomitant]
  11. METHOCARBAMOL [Concomitant]

REACTIONS (9)
  - CONTUSION [None]
  - EPISTAXIS [None]
  - MUSCLE SPASMS [None]
  - NAUSEA [None]
  - POISONING [None]
  - PRURITUS [None]
  - RETCHING [None]
  - URTICARIA [None]
  - VARICOSE VEIN [None]
